FAERS Safety Report 16253081 (Version 2)
Quarter: 2021Q1

REPORT INFORMATION
  Report Type: Spontaneous
  Country: US (occurrence: US)
  Receive Date: 20190429
  Receipt Date: 20210310
  Transmission Date: 20210419
  Serious: No
  Sender: FDA-Public Use
  Company Number: US-SA-2019SA114350

PATIENT
  Age: 76 Year
  Sex: Male

DRUGS (3)
  1. DUPIXENT [Suspect]
     Active Substance: DUPILUMAB
     Indication: DERMATITIS
     Dosage: 600 MG, 1X
     Route: 058
     Dates: start: 201709, end: 201709
  2. COVID?19 VACCINE NOS. [Concomitant]
     Active Substance: COVID-19 VACCINE NOS
     Dosage: UNK
     Route: 065
     Dates: start: 20210217
  3. DUPIXENT [Suspect]
     Active Substance: DUPILUMAB
     Dosage: 300 MG, QOW
     Route: 058
     Dates: start: 201709

REACTIONS (3)
  - Drug ineffective [Unknown]
  - Product use issue [Unknown]
  - Product use in unapproved indication [Unknown]
